FAERS Safety Report 13377163 (Version 1)
Quarter: 2017Q1

REPORT INFORMATION
  Report Type: Spontaneous
  Country: US (occurrence: US)
  Receive Date: 20170328
  Receipt Date: 20170328
  Transmission Date: 20170429
  Serious: Yes (Hospitalization)
  Sender: FDA-Public Use
  Company Number: None

PATIENT
  Age: 66 Year
  Sex: Male

DRUGS (10)
  1. TORSEMIDE. [Concomitant]
     Active Substance: TORSEMIDE
  2. ALBUTEROL. [Concomitant]
     Active Substance: ALBUTEROL
  3. CLOTRIMAZOLE. [Concomitant]
     Active Substance: CLOTRIMAZOLE
  4. FREESTYLE [Concomitant]
  5. CETIRIZINE [Concomitant]
     Active Substance: CETIRIZINE HYDROCHLORIDE
  6. DILTIAZEM. [Concomitant]
     Active Substance: DILTIAZEM
  7. TOBRAMYCIN 300MG [Suspect]
     Active Substance: TOBRAMYCIN
     Indication: ASTHMA
     Route: 055
     Dates: start: 20161004
  8. LOSARTAN. [Concomitant]
     Active Substance: LOSARTAN
  9. NYSTATIN. [Concomitant]
     Active Substance: NYSTATIN
  10. POT CL [Concomitant]

REACTIONS (2)
  - Pneumonia [None]
  - Pathogen resistance [None]

NARRATIVE: CASE EVENT DATE: 20170320
